FAERS Safety Report 7350316-4 (Version None)
Quarter: 2011Q1

REPORT INFORMATION
  Report Type: 
  Country: None (occurrence: None)
  Receive Date: 20110309
  Receipt Date: 20110309
  Transmission Date: 20110831
  Serious: Yes (Hospitalization)
  Sender: FDA-Public Use
  Company Number: None

PATIENT
  Age: 42 Year
  Weight: 117.028 kg

DRUGS (8)
  1. ZIPRASIDONE HYDROCHLORIDE [Suspect]
     Indication: SCHIZOPHRENIA
     Dosage: 80MG BID
     Dates: start: 20101018
  2. TRICOR [Concomitant]
  3. ATARAX [Concomitant]
  4. TOPAMAX [Concomitant]
  5. LAMICTAL [Concomitant]
  6. LORATADINE [Concomitant]
  7. PROPRANOLOL [Concomitant]
  8. VITAMIN D [Concomitant]

REACTIONS (1)
  - AGGRESSION [None]
